FAERS Safety Report 6955880-2 (Version None)
Quarter: 2010Q3

REPORT INFORMATION
  Report Type: 
  Country: None (occurrence: None)
  Receive Date: 20100826
  Receipt Date: 20100826
  Transmission Date: 20110219
  Serious: Yes (Other)
  Sender: FDA-Public Use
  Company Number: None

PATIENT
  Age: 56 Year
  Sex: Female
  Weight: 52.1637 kg

DRUGS (5)
  1. RECLAST [Suspect]
     Indication: OSTEOPENIA
     Dosage: STANDARD DOSE... ONE BOTTLE 1X/YEAR - IV
     Route: 042
     Dates: start: 20100521, end: 20100521
  2. RECLAST [Suspect]
     Indication: OSTEOPOROSIS
     Dosage: STANDARD DOSE... ONE BOTTLE 1X/YEAR - IV
     Route: 042
     Dates: start: 20100521, end: 20100521
  3. DIOVAN [Concomitant]
  4. ALLEGRA [Concomitant]
  5. ZPRIV [Concomitant]

REACTIONS (2)
  - ALOPECIA [None]
  - COLITIS [None]
